FAERS Safety Report 20087483 (Version 1)
Quarter: 2021Q4

REPORT INFORMATION
  Report Type: Spontaneous
  Country: None (occurrence: US)
  Receive Date: 20211118
  Receipt Date: 20211118
  Transmission Date: 20220303
  Serious: No
  Sender: FDA-Public Use
  Company Number: US-Jacobus Pharmaceutical Company, Inc.-2122023

PATIENT
  Age: 87 Year
  Sex: Female

DRUGS (15)
  1. RUZURGI [Suspect]
     Active Substance: AMIFAMPRIDINE
     Indication: Myasthenic syndrome
     Route: 048
     Dates: start: 20210511
  2. PYRIDOSTIGMINE BROMIDE [Concomitant]
     Active Substance: PYRIDOSTIGMINE BROMIDE
  3. LUMIGAN [Concomitant]
     Active Substance: BIMATOPROST
  4. LUMIGAN [Concomitant]
     Active Substance: BIMATOPROST
  5. MAXITROL [Concomitant]
     Active Substance: DEXAMETHASONE\NEOMYCIN SULFATE\POLYMYXIN B SULFATE
  6. TRIAZOLAM [Concomitant]
     Active Substance: TRIAZOLAM
  7. TEMAZEPAM [Concomitant]
     Active Substance: TEMAZEPAM
  8. ENTOCORT EC [Concomitant]
     Active Substance: BUDESONIDE
  9. COMBIGAN [Concomitant]
     Active Substance: BRIMONIDINE TARTRATE\TIMOLOL MALEATE
  10. CALCIUM CARBONATE [Concomitant]
     Active Substance: CALCIUM CARBONATE
  11. Omega [Concomitant]
  12. VITAMIN C [Concomitant]
     Active Substance: ASCORBIC ACID
  13. SELENIUM (SELENIOUS ACID) [Concomitant]
     Active Substance: SELENIOUS ACID
  14. VITAMIN D [Concomitant]
     Active Substance: VITAMIN D NOS
  15. VITAMINS [Concomitant]
     Active Substance: VITAMINS

REACTIONS (1)
  - Drug ineffective [Unknown]
